FAERS Safety Report 20176198 (Version 1)
Quarter: 2021Q4

REPORT INFORMATION
  Report Type: Spontaneous
  Country: GB (occurrence: GB)
  Receive Date: 20211213
  Receipt Date: 20211213
  Transmission Date: 20220304
  Serious: Yes (Other)
  Sender: FDA-Public Use
  Company Number: GB-PFIZER INC-202101700224

PATIENT
  Age: 10 Year
  Sex: Female

DRUGS (4)
  1. RITUXIMAB [Suspect]
     Active Substance: RITUXIMAB
     Indication: Nephrotic syndrome
     Dosage: 375 MG/M2
  2. RITUXIMAB [Suspect]
     Active Substance: RITUXIMAB
     Dosage: UNK (3.5 MG/KG/HR, INFUSION)
  3. RITUXIMAB [Suspect]
     Active Substance: RITUXIMAB
     Dosage: 1110 MG, INFUSION
  4. RITUXIMAB [Suspect]
     Active Substance: RITUXIMAB
     Dosage: 34 ML/HR, INFUSION

REACTIONS (4)
  - Throat tightness [Recovered/Resolved]
  - Migraine [Recovered/Resolved]
  - Swollen tongue [Recovered/Resolved]
  - Dyspnoea [Recovered/Resolved]
